FAERS Safety Report 6146372-1 (Version None)
Quarter: 2009Q2

REPORT INFORMATION
  Report Type: 
  Country: None (occurrence: None)
  Receive Date: 20090403
  Receipt Date: 20090403
  Transmission Date: 20091009
  Serious: No
  Sender: FDA-Public Use
  Company Number: None

PATIENT
  Age: 50 Year
  Sex: Male
  Weight: 83.9154 kg

DRUGS (2)
  1. METOPROLOL SUCCINATE [Suspect]
     Indication: HYPERTENSION
     Dosage: ONE TAB DAILY 1
     Dates: start: 20081201, end: 20090301
  2. AMLODIPINE [Suspect]
     Indication: HYPERTENSION
     Dosage: ONE TAB DAILY 1
     Dates: start: 20081201, end: 20090301

REACTIONS (1)
  - SALIVARY HYPERSECRETION [None]
